FAERS Safety Report 15953424 (Version 1)
Quarter: 2019Q1

REPORT INFORMATION
  Report Type: Spontaneous
  Country: FR (occurrence: FR)
  Receive Date: 20190212
  Receipt Date: 20190212
  Transmission Date: 20190417
  Serious: Yes (Death, Congenital Anomaly, Other)
  Sender: FDA-Public Use
  Company Number: FR-AUROBINDO-AUR-APL-2019-006898

PATIENT

DRUGS (1)
  1. TRAMADOL. [Suspect]
     Active Substance: TRAMADOL
     Indication: SPONDYLITIS
     Dosage: 300 MILLIGRAM (100 MG IN THE MORNING, 200 MG IN THE EVENING)
     Route: 064
     Dates: start: 20161224, end: 20170626

REACTIONS (1)
  - Heart disease congenital [Fatal]

NARRATIVE: CASE EVENT DATE: 20170602
